FAERS Safety Report 6593109-8 (Version None)
Quarter: 2010Q1

REPORT INFORMATION
  Report Type: 
  Country: None (occurrence: None)
  Receive Date: 20100212
  Receipt Date: 20100122
  Transmission Date: 20100710
  Serious: Yes (Life-Threatening, Hospitalization)
  Sender: FDA-Public Use
  Company Number: THQ2010A00207

PATIENT
  Age: 63 Year
  Sex: Male

DRUGS (14)
  1. LANSOPRAZOLE [Suspect]
     Dosage: PER ORAL
     Route: 048
     Dates: end: 20091114
  2. AMARYL [Suspect]
     Dosage: PER ORAL
     Route: 048
     Dates: end: 20091114
  3. ALDALIX (SPIRONOLACTONE, FUROSEMIDE) [Suspect]
     Dosage: PER ORAL
     Route: 048
     Dates: end: 20091114
  4. NEXEN (NIMESULIDE) [Suspect]
     Dosage: PER ORAL
     Route: 048
     Dates: end: 20091114
  5. STAGID (METFORMIN EMBONATE) [Suspect]
     Dosage: 700 MG, PER ORAL
     Route: 048
     Dates: end: 20091114
  6. CRESTOR [Suspect]
     Dosage: PER ORAL
     Route: 048
     Dates: end: 20091114
  7. ATENOLOL [Suspect]
     Dosage: PER ORAL
     Route: 048
     Dates: end: 20091114
  8. LERCANIDIPINE [Concomitant]
  9. PLAVIX [Concomitant]
  10. ASPIRIN [Concomitant]
  11. THIAMINE HYDROCHLORIDE, QUININE BENZOATE, MELALEUCA VIRIDIFLORA OIL [Concomitant]
  12. LANTUS [Concomitant]
  13. APIDRA [Concomitant]
  14. CORDARONE [Concomitant]

REACTIONS (3)
  - BRADYCARDIA [None]
  - LACTIC ACIDOSIS [None]
  - RENAL FAILURE ACUTE [None]
